FAERS Safety Report 12674412 (Version 1)
Quarter: 2016Q3

REPORT INFORMATION
  Report Type: Spontaneous
  Country: US (occurrence: US)
  Receive Date: 20160822
  Receipt Date: 20160822
  Transmission Date: 20161109
  Serious: No
  Sender: FDA-Public Use
  Company Number: US-BEH-2015056409

PATIENT
  Sex: Female
  Weight: 62.6 kg

DRUGS (30)
  1. ECHINACEA [Concomitant]
     Active Substance: ECHINACEA, UNSPECIFIED
  2. GOLDEN SEAL ROOT [Concomitant]
  3. DIPHENHYDRAMINE. [Concomitant]
     Active Substance: DIPHENHYDRAMINE
  4. TYLENOL EXTRA STRENGTH [Concomitant]
     Active Substance: ACETAMINOPHEN
  5. BIOTIN [Concomitant]
     Active Substance: BIOTIN
  6. CITALOPRAM [Concomitant]
     Active Substance: CITALOPRAM HYDROBROMIDE
  7. CALCIUM 250+D [Concomitant]
  8. ALBUTEROL. [Concomitant]
     Active Substance: ALBUTEROL
  9. THEO-24 [Concomitant]
     Active Substance: THEOPHYLLINE ANHYDROUS
  10. HEPARIN [Concomitant]
     Active Substance: HEPARIN SODIUM
  11. MULTIVITAMIN [Concomitant]
     Active Substance: VITAMINS
  12. TURMERIC [Concomitant]
     Active Substance: TURMERIC
  13. GRAPE SEED EXTRACT [Concomitant]
     Active Substance: GRAPE SEED EXTRACT
  14. GLUCOSAMINE [Concomitant]
     Active Substance: GLUCOSAMINE
  15. BACTRIM [Concomitant]
     Active Substance: SULFAMETHOXAZOLE\TRIMETHOPRIM
  16. SINGULAIR [Concomitant]
     Active Substance: MONTELUKAST SODIUM
  17. L-M-X [Concomitant]
  18. SPIRIVA [Concomitant]
     Active Substance: TIOTROPIUM BROMIDE MONOHYDRATE
  19. ADVAIR HFA [Concomitant]
     Active Substance: FLUTICASONE PROPIONATE\SALMETEROL XINAFOATE
  20. NORMAL SALINE [Concomitant]
     Active Substance: SODIUM CHLORIDE
  21. DOXYCYCLINE. [Concomitant]
     Active Substance: DOXYCYCLINE
  22. MEDROL [Concomitant]
     Active Substance: METHYLPREDNISOLONE
  23. FISH OIL [Concomitant]
     Active Substance: FISH OIL
  24. FOSAMAX [Concomitant]
     Active Substance: ALENDRONATE SODIUM
  25. ZEMAIRA [Suspect]
     Active Substance: .ALPHA.1-PROTEINASE INHIBITOR HUMAN
     Indication: ALPHA-1 ANTI-TRYPSIN DEFICIENCY
     Route: 042
  26. VITAMIN C [Concomitant]
     Active Substance: ASCORBIC ACID
  27. VITAMIN D3 [Concomitant]
     Active Substance: CHOLECALCIFEROL
  28. SODIUM CHLORIDE. [Concomitant]
     Active Substance: SODIUM CHLORIDE
  29. EPIPEN [Concomitant]
     Active Substance: EPINEPHRINE
  30. CLARITIN [Concomitant]
     Active Substance: LORATADINE

REACTIONS (1)
  - Sinusitis [Recovered/Resolved]
